FAERS Safety Report 7450711 (Version 3)
Quarter: 2014Q1

REPORT INFORMATION
  Report Type: Report from Study
  Country: JP (occurrence: JP)
  Receive Date: 20100701
  Receipt Date: 20140325
  Transmission Date: 20141002
  Serious: Yes (Hospitalization)
  Sender: FDA-Public Use
  Company Number: JP-PFIZER INC-2010035806

PATIENT
  Age: 60 Year
  Sex: Female
  Weight: 49 kg

DRUGS (14)
  1. REVATIO [Suspect]
     Indication: PULMONARY ARTERIAL HYPERTENSION
     Dosage: 20 MG, 1X/DAY
     Route: 048
     Dates: start: 20090304
  2. REVATIO [Suspect]
     Dosage: 20 MG, 2X/DAY
     Route: 048
     Dates: start: 20090307
  3. REVATIO [Suspect]
     Dosage: 20 MG, 3X/DAY
     Route: 048
     Dates: start: 20090310, end: 20090430
  4. VESANOID [Suspect]
     Dosage: 20 MG, 3X/DAY
     Route: 048
     Dates: start: 20090219, end: 20090723
  5. CARELOAD LA [Concomitant]
     Indication: PULMONARY HYPERTENSION
     Dosage: 60 UG, 2X/DAY
     Route: 048
     Dates: start: 20080724
  6. TRACLEER [Concomitant]
     Indication: PULMONARY HYPERTENSION
     Dosage: 125 MG, 2X/DAY
     Route: 048
     Dates: start: 20080717
  7. LASIX [Concomitant]
     Dosage: 20 MG, 2X/DAY
     Route: 048
  8. ALDACTONE-A [Concomitant]
     Indication: PULMONARY HYPERTENSION
     Dosage: 25 MG, 1X/DAY
     Route: 048
  9. CLARITH [Concomitant]
     Dosage: 200 MG, 1X/DAY
     Route: 048
  10. VFEND [Concomitant]
     Dosage: 200 MG, 2X/DAY
     Route: 048
     Dates: end: 20090430
  11. MUCODYNE [Concomitant]
     Dosage: 500 MG, 3X/DAY
     Route: 048
  12. ULGUT [Concomitant]
     Dosage: 200 MG, 2X/DAY
     Route: 048
  13. VASOLAN [Concomitant]
     Dosage: 40 MG, 2X/DAY
     Route: 048
  14. OMEPRAL [Concomitant]
     Dosage: 10 MG, 1X/DAY
     Route: 048
     Dates: start: 20090203

REACTIONS (1)
  - Anaemia [Recovering/Resolving]
